FAERS Safety Report 18216673 (Version 2)
Quarter: 2020Q3

REPORT INFORMATION
  Report Type: Spontaneous
  Country: IT (occurrence: IT)
  Receive Date: 20200901
  Receipt Date: 20200903
  Transmission Date: 20201103
  Serious: Yes (Other)
  Sender: FDA-Public Use
  Company Number: IT-ACCORD-198345

PATIENT
  Age: 80 Year
  Sex: Male

DRUGS (11)
  1. INHIXA [Interacting]
     Active Substance: ENOXAPARIN SODIUM
     Indication: IMMOBILISATION PROLONGED
     Dosage: 10,000 IU (100 MG)/1 ML SOLUTION FOR INJECTION
     Route: 058
     Dates: start: 20200810, end: 20200812
  2. DUTASTERIDE. [Concomitant]
     Active Substance: DUTASTERIDE
  3. DEPAKIN [Concomitant]
     Active Substance: VALPROATE SODIUM
  4. CLOPIDOGREL [Suspect]
     Active Substance: CLOPIDOGREL BISULFATE
     Indication: CEREBRAL ISCHAEMIA
     Route: 048
  5. HYDROCHLOROTHIAZIDE. [Concomitant]
     Active Substance: HYDROCHLOROTHIAZIDE
  6. ATORVASTATIN [Concomitant]
     Active Substance: ATORVASTATIN
  7. SINEMET [Concomitant]
     Active Substance: CARBIDOPA\LEVODOPA
  8. JUMEX [Concomitant]
     Active Substance: SELEGILINE HYDROCHLORIDE
  9. ESOMEPRAZOLE. [Concomitant]
     Active Substance: ESOMEPRAZOLE MAGNESIUM
  10. DIBASE [Concomitant]
     Active Substance: CHOLECALCIFEROL
  11. RAMIPRIL. [Concomitant]
     Active Substance: RAMIPRIL

REACTIONS (3)
  - Drug interaction [Unknown]
  - Haematuria [Recovering/Resolving]
  - Epididymitis [Unknown]

NARRATIVE: CASE EVENT DATE: 20200811
